FAERS Safety Report 12426601 (Version 2)
Quarter: 2016Q2

REPORT INFORMATION
  Report Type: Report from Study
  Country: BR (occurrence: BR)
  Receive Date: 20160601
  Receipt Date: 20160620
  Transmission Date: 20160815
  Serious: No
  Sender: FDA-Public Use
  Company Number: PHHY2016BR074405

PATIENT
  Sex: Female
  Weight: 50 kg

DRUGS (2)
  1. EXJADE [Suspect]
     Active Substance: DEFERASIROX
     Indication: ANAEMIA
     Dosage: 20 MG/KG, QD (2 DF OF 500 MG)
     Route: 048
     Dates: start: 20160511
  2. EXJADE [Suspect]
     Active Substance: DEFERASIROX
     Dosage: 1000 MG, QD
     Route: 065

REACTIONS (7)
  - Myalgia [Unknown]
  - Oropharyngeal plaque [Unknown]
  - Oropharyngeal pain [Unknown]
  - Lip injury [Not Recovered/Not Resolved]
  - Osteoarthritis [Unknown]
  - Weight decreased [Unknown]
  - Oral pain [Unknown]
